FAERS Safety Report 14674356 (Version 4)
Quarter: 2018Q4

REPORT INFORMATION
  Report Type: Spontaneous
  Country: US (occurrence: US)
  Receive Date: 20180323
  Receipt Date: 20181221
  Transmission Date: 20190204
  Serious: Yes (Hospitalization, Other)
  Sender: FDA-Public Use
  Company Number: US-GLAXOSMITHKLINE-US2018048541

PATIENT
  Sex: Female

DRUGS (4)
  1. ADVAIR DISKUS [Suspect]
     Active Substance: FLUTICASONE PROPIONATE\SALMETEROL XINAFOATE
     Indication: CHRONIC OBSTRUCTIVE PULMONARY DISEASE
     Dosage: 1 PUFF(S), BID
     Route: 055
  2. VENTOLIN HFA [Suspect]
     Active Substance: ALBUTEROL SULFATE
     Indication: CHRONIC OBSTRUCTIVE PULMONARY DISEASE
  3. VENTOLIN HFA [Suspect]
     Active Substance: ALBUTEROL SULFATE
     Indication: DYSPNOEA
     Dosage: 90MCG SPRAY 2 PUFF(S), PRN
     Route: 055
  4. ADVAIR DISKUS [Suspect]
     Active Substance: FLUTICASONE PROPIONATE\SALMETEROL XINAFOATE
     Indication: DYSPNOEA

REACTIONS (28)
  - Encephalopathy [Unknown]
  - Oxygen therapy [Unknown]
  - Hospitalisation [Unknown]
  - Hypoaesthesia [Unknown]
  - Oxygen saturation decreased [Unknown]
  - Hypomagnesaemia [Unknown]
  - Hip fracture [Unknown]
  - Accident [Unknown]
  - Pneumonia [Unknown]
  - Fall [Unknown]
  - Hypoxia [Unknown]
  - Troponin increased [Unknown]
  - Amnesia [Unknown]
  - Pulmonary embolism [Unknown]
  - Spinal compression fracture [Unknown]
  - Confusional state [Recovering/Resolving]
  - Motor dysfunction [Unknown]
  - Drug effect decreased [Unknown]
  - Cardiac disorder [Unknown]
  - Joint dislocation [Unknown]
  - Peripheral coldness [Unknown]
  - Heart rate decreased [Unknown]
  - Cardiomyopathy [Unknown]
  - Hallucination [Unknown]
  - Dyspnoea exertional [Unknown]
  - Atrial fibrillation [Unknown]
  - Thrombosis [Unknown]
  - Pelvic fracture [Unknown]

NARRATIVE: CASE EVENT DATE: 2017
